FAERS Safety Report 7941421-X (Version None)
Quarter: 2011Q4

REPORT INFORMATION
  Report Type: 
  Country: None (occurrence: None)
  Receive Date: 20111128
  Receipt Date: 20111114
  Transmission Date: 20120403
  Serious: No
  Sender: FDA-Public Use
  Company Number: US-B.I. PHARMACEUTICALS,INC./RIDGEFIELD-2011-BP-26171BP

PATIENT
  Sex: Female

DRUGS (6)
  1. MULTI-VITAMINS [Concomitant]
     Indication: PROPHYLAXIS
     Route: 048
  2. IBUPROFEN (ADVIL) [Concomitant]
     Indication: FIBROMYALGIA
     Route: 048
  3. ZANTAC [Concomitant]
     Indication: DYSPEPSIA
     Dosage: 150 MG
     Route: 048
  4. ZANTAC [Suspect]
     Indication: DYSPEPSIA
     Dosage: 150 MG
     Route: 048
     Dates: start: 20111109, end: 20111113
  5. ZANTAC [Suspect]
  6. ZYRTEC [Concomitant]
     Indication: SEASONAL ALLERGY
     Dosage: 10 MG
     Route: 048

REACTIONS (1)
  - DYSPEPSIA [None]
